FAERS Safety Report 25327465 (Version 1)
Quarter: 2025Q2

REPORT INFORMATION
  Report Type: Spontaneous
  Country: JP (occurrence: JP)
  Receive Date: 20250517
  Receipt Date: 20250517
  Transmission Date: 20250716
  Serious: Yes (Life-Threatening, Hospitalization, Other)
  Sender: INVENTIA HEALTHCARE PRIVATE LIMITED
  Company Number: JP-Inventia-000810

PATIENT
  Age: 39 Year
  Sex: Male
  Weight: 87.2 kg

DRUGS (1)
  1. METFORMIN HYDROCHLORIDE [Suspect]
     Active Substance: METFORMIN HYDROCHLORIDE
     Indication: Type 2 diabetes mellitus
     Dosage: DAILY

REACTIONS (7)
  - Lactic acidosis [Recovering/Resolving]
  - Shock [Recovering/Resolving]
  - Cardiac arrest [Recovering/Resolving]
  - Coma [Recovered/Resolved]
  - Acute kidney injury [Recovered/Resolved]
  - Leukocytosis [Unknown]
  - Hepatic enzyme increased [Unknown]
